FAERS Safety Report 11401799 (Version 1)
Quarter: 2015Q3

REPORT INFORMATION
  Report Type: Spontaneous
  Country: US (occurrence: None)
  Receive Date: 20150819
  Receipt Date: 20150819
  Transmission Date: 20151125
  Serious: Yes (Hospitalization)
  Sender: FDA-Public Use
  Company Number: None

PATIENT
  Age: 74 Year
  Sex: Male
  Weight: 60 kg

DRUGS (2)
  1. WARFARIN [Suspect]
     Active Substance: WARFARIN
     Dates: start: 20120130, end: 20120529
  2. ASPIRIN. [Suspect]
     Active Substance: ASPIRIN
     Dates: start: 20120124, end: 20120324

REACTIONS (4)
  - Intraventricular haemorrhage [None]
  - Head injury [None]
  - Fall [None]
  - Subdural haematoma [None]

NARRATIVE: CASE EVENT DATE: 20120528
